FAERS Safety Report 19647696 (Version 1)
Quarter: 2021Q3

REPORT INFORMATION
  Report Type: Spontaneous
  Country: PL (occurrence: PL)
  Receive Date: 20210802
  Receipt Date: 20210802
  Transmission Date: 20211014
  Serious: Yes (Death, Life-Threatening, Other)
  Sender: FDA-Public Use
  Company Number: PL-SUN PHARMACEUTICAL INDUSTRIES LTD-2021R1-306308

PATIENT
  Age: 35 Year
  Sex: Male

DRUGS (3)
  1. PREDNISONE. [Suspect]
     Active Substance: PREDNISONE
     Indication: PYODERMA GANGRENOSUM
     Dosage: 0.5 MILLIGRAM/KILOGRAM, DAILY
     Route: 048
     Dates: start: 202003
  2. CYCLOSPORIN [Suspect]
     Active Substance: CYCLOSPORINE
     Indication: PYODERMA GANGRENOSUM
     Dosage: 4.2 MILLIGRAM/KILOGRAM, DAILY
     Route: 065
     Dates: start: 202003
  3. ANAKINRA [Suspect]
     Active Substance: ANAKINRA
     Indication: PRODUCT USED FOR UNKNOWN INDICATION
     Dosage: 100 MILLIGRAM, DAILY
     Route: 058
     Dates: start: 202003

REACTIONS (7)
  - Multiple organ dysfunction syndrome [Fatal]
  - Sepsis [Fatal]
  - Disease progression [Not Recovered/Not Resolved]
  - Thrombocytopenia [Not Recovered/Not Resolved]
  - Drug ineffective [Unknown]
  - Neutropenia [Unknown]
  - Lymphopenia [Unknown]
